FAERS Safety Report 6265883-1 (Version None)
Quarter: 2009Q3

REPORT INFORMATION
  Report Type: 
  Country: None (occurrence: None)
  Receive Date: 20090713
  Receipt Date: 20090629
  Transmission Date: 20100115
  Serious: Yes (Hospitalization)
  Sender: FDA-Public Use
  Company Number: A0788882A

PATIENT
  Age: 57 Year
  Sex: Male
  Weight: 83.6 kg

DRUGS (3)
  1. BEXXAR [Suspect]
     Indication: DRUG USE FOR UNKNOWN INDICATION
     Route: 042
     Dates: start: 20090514
  2. BEXXAR [Suspect]
     Indication: DRUG USE FOR UNKNOWN INDICATION
     Route: 042
     Dates: start: 20090514
  3. POTASSIUM IODIDE [Suspect]
     Indication: DRUG USE FOR UNKNOWN INDICATION
     Dates: start: 20090513

REACTIONS (4)
  - ARTHRALGIA [None]
  - HYPOTENSION [None]
  - RASH [None]
  - SYNCOPE [None]
